FAERS Safety Report 8086639-3 (Version None)
Quarter: 2012Q1

REPORT INFORMATION
  Report Type: 
  Country: None (occurrence: None)
  Receive Date: 20120128
  Receipt Date: 20110513
  Transmission Date: 20120608
  Serious: No
  Sender: FDA-Public Use
  Company Number: US-ABBOTT-11P-163-0726384-00

PATIENT
  Sex: Male
  Weight: 113.5 kg

DRUGS (12)
  1. ALPRAZOLAM [Concomitant]
     Indication: ANXIETY
  2. LISINOPRIL [Concomitant]
     Indication: HYPERTENSION
  3. BACLOFEN [Concomitant]
     Indication: ARTHRALGIA
  4. AMLODIPINE [Concomitant]
     Indication: HYPERTENSION
  5. MOMETASONE FUROATE [Concomitant]
     Indication: ASTHMA
  6. POTASSIUM [Concomitant]
     Indication: PRODUCT USED FOR UNKNOWN INDICATION
  7. LASIX [Concomitant]
     Indication: CARDIAC FAILURE CONGESTIVE
  8. HUMIRA [Suspect]
     Indication: RHEUMATOID ARTHRITIS
     Dates: start: 20110201, end: 20110501
  9. ACETAMINOPHEN AND HYDROCODONE BITARTRATE [Concomitant]
     Indication: ARTHRALGIA
  10. SIMVASTATIN [Concomitant]
     Indication: BLOOD CHOLESTEROL
  11. HYDROCHLOROTHIAZIDE [Concomitant]
     Indication: HYPERTENSION
  12. ALBUTEROL [Concomitant]
     Indication: ASTHMA

REACTIONS (4)
  - RHEUMATOID ARTHRITIS [None]
  - JOINT SWELLING [None]
  - DRUG EFFECT DECREASED [None]
  - ARTHRALGIA [None]
